FAERS Safety Report 10648358 (Version 3)
Quarter: 2015Q1

REPORT INFORMATION
  Report Type: Report from Study
  Country: ES (occurrence: ES)
  Receive Date: 20141212
  Receipt Date: 20150106
  Transmission Date: 20150720
  Serious: Yes (Hospitalization, Other)
  Sender: FDA-Public Use
  Company Number: PHHY2014ES155131

PATIENT
  Age: 55 Year
  Sex: Female

DRUGS (1)
  1. SANDOSTATIN LAR DEPOT [Suspect]
     Active Substance: OCTREOTIDE ACETATE
     Indication: ACROMEGALY
     Dosage: 30 MG
     Route: 030
     Dates: start: 20131115, end: 20141103

REACTIONS (5)
  - Cholecystitis [Recovered/Resolved]
  - Hepatitis [Recovered/Resolved]
  - Jaundice [Recovered/Resolved]
  - Septic shock [Recovered/Resolved]
  - Cholelithiasis [Recovered/Resolved]

NARRATIVE: CASE EVENT DATE: 20141103
